FAERS Safety Report 18212900 (Version 1)
Quarter: 2020Q3

REPORT INFORMATION
  Report Type: Spontaneous
  Country: US (occurrence: US)
  Receive Date: 20200830
  Receipt Date: 20200830
  Transmission Date: 20201103
  Serious: Yes (Other)
  Sender: FDA-Public Use
  Company Number: None

PATIENT
  Age: 23 Year
  Sex: Female
  Weight: 74.84 kg

DRUGS (1)
  1. NEXPLANON [Suspect]
     Active Substance: ETONOGESTREL

REACTIONS (11)
  - Abortion spontaneous [None]
  - Pain in extremity [None]
  - Alopecia [None]
  - Muscle spasms [None]
  - Vaginal haemorrhage [None]
  - Pain [None]
  - Ovarian cyst [None]
  - Gait inability [None]
  - Depressed mood [None]
  - Headache [None]
  - Weight increased [None]

NARRATIVE: CASE EVENT DATE: 20170201
